FAERS Safety Report 5702518-8 (Version None)
Quarter: 2008Q2

REPORT INFORMATION
  Report Type: 
  Country: None (occurrence: None)
  Receive Date: 20080411
  Receipt Date: 20070703
  Transmission Date: 20081010
  Serious: No
  Sender: FDA-Public Use
  Company Number: US-ASTRAZENECA-2007UW15629

PATIENT
  Sex: Female

DRUGS (4)
  1. ATENOLOL [Suspect]
     Route: 048
  2. CLONIDINE HCL [Suspect]
  3. CARDIA [Suspect]
  4. PREVACID [Suspect]

REACTIONS (1)
  - ILL-DEFINED DISORDER [None]
